FAERS Safety Report 17282324 (Version 1)
Quarter: 2020Q1

REPORT INFORMATION
  Report Type: Spontaneous
  Country: US (occurrence: US)
  Receive Date: 20200116
  Receipt Date: 20200116
  Transmission Date: 20200409
  Serious: No
  Sender: FDA-Public Use
  Company Number: None

PATIENT
  Age: 33 Year
  Sex: Male
  Weight: 67.5 kg

DRUGS (1)
  1. METHYLPHENIDATE ER 54 MG TAB GEN FOR: CONCERTA [Suspect]
     Active Substance: METHYLPHENIDATE
     Indication: ATTENTION DEFICIT/HYPERACTIVITY DISORDER
     Dosage: ?          QUANTITY:1 TABLET(S);?
     Route: 048

REACTIONS (5)
  - Product substitution issue [None]
  - Therapeutic response decreased [None]
  - Product supply issue [None]
  - Therapeutic product effect variable [None]
  - Dry mouth [None]

NARRATIVE: CASE EVENT DATE: 20191216
